FAERS Safety Report 17382517 (Version 1)
Quarter: 2020Q1

REPORT INFORMATION
  Report Type: Spontaneous
  Country: US (occurrence: US)
  Receive Date: 20200206
  Receipt Date: 20200206
  Transmission Date: 20200409
  Serious: No
  Sender: FDA-Public Use
  Company Number: US-ABBVIE-19K-163-2939613-00

PATIENT
  Sex: Male

DRUGS (1)
  1. HUMIRA [Suspect]
     Active Substance: ADALIMUMAB
     Indication: RHEUMATOID ARTHRITIS
     Dosage: START DATE WAS GREATER THAN TWO YEARS AGO
     Route: 058
     Dates: start: 2017

REACTIONS (4)
  - Incorrect dose administered [Unknown]
  - Injection site haemorrhage [Unknown]
  - Needle issue [Unknown]
  - Wrong technique in product usage process [Unknown]
